FAERS Safety Report 14292374 (Version 2)
Quarter: 2017Q4

REPORT INFORMATION
  Report Type: Report from Study
  Country: ES (occurrence: ES)
  Receive Date: 20171215
  Receipt Date: 20171221
  Transmission Date: 20180321
  Serious: Yes (Death, Hospitalization)
  Sender: FDA-Public Use
  Company Number: ES-ASTRAZENECA-2017SF20830

PATIENT
  Age: 18882 Day
  Sex: Male
  Weight: 68.5 kg

DRUGS (3)
  1. MEDI4736 [Suspect]
     Active Substance: DURVALUMAB
     Indication: NEOPLASM
     Route: 042
     Dates: start: 20171107, end: 20171107
  2. AZD9150 [Suspect]
     Active Substance: INVESTIGATIONAL PRODUCT
     Indication: NEOPLASM
     Route: 042
     Dates: start: 20171030, end: 20171117
  3. EUTIROX [Concomitant]
     Active Substance: LEVOTHYROXINE SODIUM
     Indication: HYPOTHYROIDISM
     Route: 048
     Dates: start: 20171121

REACTIONS (1)
  - Mouth haemorrhage [Fatal]

NARRATIVE: CASE EVENT DATE: 20171123
